FAERS Safety Report 15944035 (Version 1)
Quarter: 2019Q1

REPORT INFORMATION
  Report Type: Spontaneous
  Country: US (occurrence: US)
  Receive Date: 20190211
  Receipt Date: 20190211
  Transmission Date: 20190417
  Serious: No
  Sender: FDA-Public Use
  Company Number: US-ELI_LILLY_AND_COMPANY-US201901015886

PATIENT
  Sex: Female

DRUGS (2)
  1. BASAGLAR [Suspect]
     Active Substance: INSULIN GLARGINE
     Indication: PRODUCT USED FOR UNKNOWN INDICATION
     Dosage: 30 U, UNKNOWN
     Route: 065
     Dates: start: 201810
  2. BASAGLAR [Suspect]
     Active Substance: INSULIN GLARGINE
     Dosage: 4 U, UNKNOWN
     Route: 065

REACTIONS (2)
  - Arthralgia [Unknown]
  - Underdose [Unknown]
